FAERS Safety Report 5815390-2 (Version None)
Quarter: 2008Q3

REPORT INFORMATION
  Report Type: 
  Country: None (occurrence: None)
  Receive Date: 20080715
  Receipt Date: 20080630
  Transmission Date: 20090109
  Serious: Yes (Hospitalization, Other)
  Sender: FDA-Public Use
  Company Number: 220001J08DEU

PATIENT
  Age: 12 Year
  Sex: Male
  Weight: 38 kg

DRUGS (1)
  1. SAIZEN [Suspect]
     Dates: start: 20080507

REACTIONS (8)
  - ATTENTION DEFICIT/HYPERACTIVITY DISORDER [None]
  - CONVERSION DISORDER [None]
  - CONVULSION [None]
  - GROWTH HORMONE DEFICIENCY [None]
  - HYPOTHALAMO-PITUITARY DISORDER [None]
  - HYPOTHYROIDISM [None]
  - POST-TRAUMATIC STRESS DISORDER [None]
  - TREMOR [None]
